FAERS Safety Report 5005890-X (Version None)
Quarter: 2006Q2

REPORT INFORMATION
  Report Type: 
  Country: None (occurrence: None)
  Receive Date: 20060516
  Receipt Date: 20060426
  Transmission Date: 20061013
  Serious: Yes (Hospitalization, Other)
  Sender: FDA-Public Use
  Company Number: US200604001464

PATIENT
  Age: 84 Year
  Sex: Male

DRUGS (2)
  1. FORTEO [Suspect]
     Indication: OSTEOPOROSIS
     Dates: start: 20050901
  2. FORTEO [Concomitant]

REACTIONS (3)
  - ALLERGIC GRANULOMATOUS ANGIITIS [None]
  - CONDITION AGGRAVATED [None]
  - PNEUMONIA [None]
